FAERS Safety Report 9955132 (Version 2)
Quarter: 2014Q2

REPORT INFORMATION
  Report Type: Spontaneous
  Country: TR (occurrence: TR)
  Receive Date: 20140304
  Receipt Date: 20140414
  Transmission Date: 20141212
  Serious: Yes (Other)
  Sender: FDA-Public Use
  Company Number: TR-BAXTER-2014BAX010374

PATIENT
  Age: 44 Year
  Sex: Male
  Weight: 45 kg

DRUGS (2)
  1. KIOVIG 5G/50ML IV INF?ZYON I?IN ??ZELTI I?EREN FLAKON [Suspect]
     Indication: IMMUNODEFICIENCY
     Route: 042
     Dates: start: 20140120, end: 20140120
  2. PREDNOL [Concomitant]
     Indication: PREMEDICATION
     Route: 042
     Dates: start: 20140120, end: 20140120

REACTIONS (6)
  - Hypotension [Recovered/Resolved]
  - Cyanosis [Recovered/Resolved]
  - Tachycardia [Recovered/Resolved]
  - Nausea [Recovered/Resolved]
  - Vomiting [Recovered/Resolved]
  - Visual impairment [Recovered/Resolved]
